FAERS Safety Report 6371418-5 (Version None)
Quarter: 2009Q3

REPORT INFORMATION
  Report Type: 
  Country: None (occurrence: None)
  Receive Date: 20090923
  Receipt Date: 20080114
  Transmission Date: 20100115
  Serious: Yes (Other)
  Sender: FDA-Public Use
  Company Number: US-ASTRAZENECA-2007UW14004

PATIENT
  Age: 17514 Day
  Sex: Female
  Weight: 107 kg

DRUGS (7)
  1. SEROQUEL [Suspect]
     Indication: SLEEP DISORDER
     Route: 048
     Dates: start: 20051004
  2. SEROQUEL [Suspect]
     Route: 048
     Dates: start: 20051201, end: 20060305
  3. ETODOLAC [Concomitant]
     Dates: start: 20050324
  4. CLONAZEPAM [Concomitant]
     Dates: start: 20050902
  5. HYDROCODONE [Concomitant]
     Dates: start: 20051103
  6. PROMETHEGAN [Concomitant]
     Dates: start: 20051103
  7. FLUOXETINE [Concomitant]
     Dates: start: 20051201

REACTIONS (3)
  - DIABETES MELLITUS [None]
  - DIABETIC KETOACIDOSIS [None]
  - TYPE 2 DIABETES MELLITUS [None]
